FAERS Safety Report 5109153-3 (Version None)
Quarter: 2006Q3

REPORT INFORMATION
  Report Type: 
  Country: None (occurrence: None)
  Receive Date: 20060920
  Receipt Date: 20060908
  Transmission Date: 20061208
  Serious: Yes (Other)
  Sender: FDA-Public Use
  Company Number: DE-ROCHE-462521

PATIENT
  Age: 46 Year
  Sex: Male

DRUGS (6)
  1. SAQUINAVIR [Suspect]
     Route: 065
     Dates: start: 20040401
  2. RITONAVIR [Suspect]
     Route: 065
     Dates: start: 20040401
  3. ATAZANAVIR [Suspect]
     Route: 065
     Dates: start: 20040401
  4. LAMIVUDINE [Suspect]
     Route: 065
     Dates: start: 20040401
  5. ABACAVIR [Suspect]
     Route: 065
     Dates: start: 20040401
  6. STAVUDINE [Suspect]
     Route: 065

REACTIONS (5)
  - IMMUNE RECONSTITUTION SYNDROME [None]
  - INTERSTITIAL LUNG DISEASE [None]
  - PNEUMOCYSTIS JIROVECI PNEUMONIA [None]
  - SEBORRHOEIC DERMATITIS [None]
  - WEIGHT DECREASED [None]
